FAERS Safety Report 5566375-5 (Version None)
Quarter: 2007Q4

REPORT INFORMATION
  Report Type: 
  Country: None (occurrence: None)
  Receive Date: 20071219
  Receipt Date: 20071205
  Transmission Date: 20080405
  Serious: Yes (Hospitalization)
  Sender: FDA-Public Use
  Company Number: JP-BAYER-200710910BYL

PATIENT
  Age: 54 Year
  Sex: Male

DRUGS (4)
  1. AVELOX [Suspect]
     Indication: NASOPHARYNGITIS
     Dosage: TOTAL DAILY DOSE: 400 MG  UNIT DOSE: 400 MG
     Route: 048
     Dates: start: 20071115, end: 20071120
  2. PL [Suspect]
     Indication: NASOPHARYNGITIS
     Dosage: UNIT DOSE: 1 G
     Route: 048
     Dates: start: 20071115, end: 20071120
  3. MUCOSTA [Suspect]
     Indication: NASOPHARYNGITIS
     Dosage: UNIT DOSE: 100 MG
     Route: 048
     Dates: start: 20071115, end: 20071120
  4. LOXONIN [Suspect]
     Indication: NASOPHARYNGITIS
     Dosage: UNIT DOSE: 60 MG
     Route: 048
     Dates: start: 20071115, end: 20071120

REACTIONS (2)
  - DIARRHOEA [None]
  - ORAL MUCOSA EROSION [None]
